FAERS Safety Report 4393946-4 (Version None)
Quarter: 2004Q3

REPORT INFORMATION
  Report Type: 
  Country: None (occurrence: None)
  Receive Date: 20040702
  Receipt Date: 20040624
  Transmission Date: 20050211
  Serious: Yes (Hospitalization, Other)
  Sender: FDA-Public Use
  Company Number: 2004IC000304

PATIENT
  Age: 70 Year
  Sex: Female

DRUGS (2)
  1. FLUOROURACIL [Suspect]
     Indication: RECTAL CANCER
     Dosage: SEE IMAGE
  2. FOLINIC ACID (FOLINIC ACID) [Suspect]
     Indication: RECTAL CANCER
     Dosage: SEE IMAGE
     Route: 042

REACTIONS (2)
  - DYSPNOEA [None]
  - PAIN [None]
